FAERS Safety Report 25195306 (Version 5)
Quarter: 2025Q2

REPORT INFORMATION
  Report Type: Spontaneous
  Country: CO (occurrence: CO)
  Receive Date: 20250415
  Receipt Date: 20250617
  Transmission Date: 20250717
  Serious: Yes (Hospitalization, Other)
  Sender: SANOFI AVENTIS
  Company Number: CO-SA-2025SA103326

PATIENT
  Age: 78 Year
  Sex: Female

DRUGS (10)
  1. SOLIQUA 100/33 [Suspect]
     Active Substance: INSULIN GLARGINE\LIXISENATIDE
     Indication: Type 2 diabetes mellitus
     Route: 058
     Dates: start: 2022, end: 20250328
  2. SOLIQUA 100/33 [Suspect]
     Active Substance: INSULIN GLARGINE\LIXISENATIDE
     Dosage: 20 IU, QD
     Route: 058
     Dates: start: 20250328, end: 2025
  3. SOLIQUA 100/33 [Suspect]
     Active Substance: INSULIN GLARGINE\LIXISENATIDE
     Route: 058
     Dates: start: 2025, end: 2025
  4. SOLIQUA 100/33 [Suspect]
     Active Substance: INSULIN GLARGINE\LIXISENATIDE
     Route: 058
     Dates: start: 2025, end: 2025
  5. SOLIQUA 100/33 [Suspect]
     Active Substance: INSULIN GLARGINE\LIXISENATIDE
     Dosage: 30-40IU, QD
     Route: 058
     Dates: start: 2025
  6. ALIROCUMAB [Suspect]
     Active Substance: ALIROCUMAB
     Indication: Ischaemic cardiomyopathy
     Dosage: 75 MG, QOW
     Route: 058
     Dates: start: 20240924
  7. ALIROCUMAB [Suspect]
     Active Substance: ALIROCUMAB
     Indication: Dyslipidaemia
  8. APIDRA [Suspect]
     Active Substance: INSULIN GLULISINE
     Indication: Type 2 diabetes mellitus
     Route: 065
     Dates: end: 20250328
  9. ENTRESTO [Concomitant]
     Active Substance: SACUBITRIL\VALSARTAN
     Indication: Hypertension
  10. ATORVASTATIN [Concomitant]
     Active Substance: ATORVASTATIN
     Indication: Cardiovascular disorder
     Dosage: 40 MG, QD
     Route: 048

REACTIONS (16)
  - Thrombosis [Recovering/Resolving]
  - Myocardial infarction [Recovered/Resolved]
  - Glycosylated haemoglobin decreased [Recovered/Resolved]
  - Blood glucose increased [Recovering/Resolving]
  - Glycosylated haemoglobin increased [Unknown]
  - Blood creatinine increased [Recovered/Resolved]
  - Influenza [Recovered/Resolved]
  - Pruritus [Not Recovered/Not Resolved]
  - Cough [Recovered/Resolved]
  - Nasal congestion [Recovered/Resolved]
  - Pyrexia [Recovered/Resolved]
  - Eye irritation [Not Recovered/Not Resolved]
  - Oral discomfort [Not Recovered/Not Resolved]
  - Blood cholesterol abnormal [Unknown]
  - Chest pain [Unknown]
  - Intentional product misuse [Unknown]

NARRATIVE: CASE EVENT DATE: 20240501
